FAERS Safety Report 7094701-7 (Version None)
Quarter: 2010Q4

REPORT INFORMATION
  Report Type: 
  Country: None (occurrence: None)
  Receive Date: 20101110
  Receipt Date: 20080715
  Transmission Date: 20110411
  Serious: No
  Sender: FDA-Public Use
  Company Number: US-KINGPHARMUSA00001-K200800847

PATIENT
  Age: 41 Year
  Sex: Female

DRUGS (1)
  1. SKELAXIN [Suspect]
     Indication: MUSCLE SPASMS
     Dosage: 800 MG, TID-AT 6 HOUR INTERVALS
     Route: 048
     Dates: start: 20080601, end: 20080714

REACTIONS (1)
  - MEMORY IMPAIRMENT [None]
